FAERS Safety Report 7602774-5 (Version None)
Quarter: 2011Q3

REPORT INFORMATION
  Report Type: 
  Country: None (occurrence: None)
  Receive Date: 20110711
  Receipt Date: 20110711
  Transmission Date: 20111222
  Serious: Yes (Disabling, Other)
  Sender: FDA-Public Use
  Company Number: None

PATIENT
  Sex: Male
  Weight: 90.7194 kg

DRUGS (1)
  1. FINASTERIDE [Suspect]
     Indication: ALOPECIA
     Dosage: 1MG DAILY PO
     Route: 048
     Dates: start: 20080104, end: 20080404

REACTIONS (16)
  - PENIS DISORDER [None]
  - WEIGHT INCREASED [None]
  - SCROTAL PAIN [None]
  - DISSOCIATION [None]
  - BREAST PAIN [None]
  - ABNORMAL DREAMS [None]
  - DEPRESSION [None]
  - NIPPLE DISORDER [None]
  - ORGANIC ERECTILE DYSFUNCTION [None]
  - GYNAECOMASTIA [None]
  - HYPERAESTHESIA [None]
  - BLOOD TEST ABNORMAL [None]
  - LOSS OF LIBIDO [None]
  - SLEEP DISORDER [None]
  - BLOOD BLISTER [None]
  - PENILE SIZE REDUCED [None]
